FAERS Safety Report 4788673-5 (Version None)
Quarter: 2005Q4

REPORT INFORMATION
  Report Type: 
  Country: None (occurrence: None)
  Receive Date: 20051005
  Receipt Date: 20050928
  Transmission Date: 20060501
  Serious: Yes (Hospitalization)
  Sender: FDA-Public Use
  Company Number: US-JNJFOC-20051000263

PATIENT
  Sex: Female

DRUGS (9)
  1. DURAGESIC-100 [Suspect]
     Route: 062
     Dates: start: 20050301
  2. CELEBREX [Concomitant]
     Indication: ARTHRITIS
     Route: 048
     Dates: start: 20050101
  3. PREMPRO [Concomitant]
     Route: 048
  4. PREMPRO [Concomitant]
     Indication: HORMONE REPLACEMENT THERAPY
     Route: 048
  5. LASIX [Concomitant]
     Route: 048
     Dates: start: 20040101
  6. POTASSIUM [Concomitant]
     Indication: PROPHYLAXIS
     Route: 048
     Dates: start: 20040101
  7. CYMBALTA [Concomitant]
     Route: 048
     Dates: start: 20050301
  8. TRAZODONE [Concomitant]
     Route: 048
  9. KLONOPIN [Concomitant]
     Route: 048
     Dates: start: 20050301

REACTIONS (4)
  - ABDOMINAL PAIN UPPER [None]
  - BILE DUCT OBSTRUCTION [None]
  - PYREXIA [None]
  - WHITE BLOOD CELL COUNT INCREASED [None]
